FAERS Safety Report 10896043 (Version 1)
Quarter: 2015Q1

REPORT INFORMATION
  Report Type: Spontaneous
  Country: CN (occurrence: CN)
  Receive Date: 20150308
  Receipt Date: 20150308
  Transmission Date: 20150721
  Serious: Yes (Hospitalization)
  Sender: FDA-Public Use
  Company Number: CN-MYLANLABS-2015M1007104

PATIENT

DRUGS (4)
  1. GEFITINIB [Suspect]
     Active Substance: GEFITINIB
     Dosage: 250 MG, QD
     Route: 065
     Dates: start: 20130815
  2. CISPLATIN. [Suspect]
     Active Substance: CISPLATIN
     Dosage: 75 MG/M2 ON DAYS 1 TO 3, CYCLES REPEATED EVERY 3 WEEKS
     Route: 065
     Dates: start: 20130802
  3. PEMETREXED [Suspect]
     Active Substance: PEMETREXED
     Indication: NON-SMALL CELL LUNG CANCER STAGE IV
     Dosage: 500 MG/M2 ON DAY 1, CYCLES REPEATED EVERY 3 WEEKS
     Route: 065
     Dates: start: 20130802
  4. FOLIC ACID. [Concomitant]
     Active Substance: FOLIC ACID
     Route: 065

REACTIONS (1)
  - Toxic epidermal necrolysis [Recovered/Resolved]
